FAERS Safety Report 9715676 (Version 1)
Quarter: 2013Q4

REPORT INFORMATION
  Report Type: Spontaneous
  Country: IT (occurrence: IT)
  Receive Date: 20131127
  Receipt Date: 20131127
  Transmission Date: 20140711
  Serious: Yes (Hospitalization)
  Sender: FDA-Public Use
  Company Number: IT-JNJFOC-20131113230

PATIENT
  Age: 17 Year
  Sex: Female

DRUGS (3)
  1. SERENASE [Suspect]
     Indication: ANXIETY
     Route: 048
     Dates: start: 20131023, end: 20131023
  2. ABILIFY [Suspect]
     Indication: ANXIETY
     Route: 048
     Dates: start: 20131023, end: 20131023
  3. EUTIROX [Concomitant]
     Indication: HYPOTHYROIDISM
     Route: 065

REACTIONS (4)
  - Headache [Recovering/Resolving]
  - Hyperventilation [Recovering/Resolving]
  - Panic attack [Recovering/Resolving]
  - Vertigo [Recovering/Resolving]
